FAERS Safety Report 5358568-7 (Version None)
Quarter: 2007Q2

REPORT INFORMATION
  Report Type: 
  Country: None (occurrence: None)
  Receive Date: 20070601
  Receipt Date: 20070328
  Transmission Date: 20071010
  Serious: No
  Sender: FDA-Public Use
  Company Number: PHEH2007US03740

PATIENT
  Age: 74 Year
  Sex: Female

DRUGS (2)
  1. ENABLEX [Suspect]
     Indication: HYPERTONIC BLADDER
     Dates: start: 20070323
  2. NORTRIPTYLINE HCL [Suspect]
     Dates: end: 20070316

REACTIONS (1)
  - SOMNOLENCE [None]
